FAERS Safety Report 4269420-2 (Version None)
Quarter: 2004Q1

REPORT INFORMATION
  Report Type: 
  Country: None (occurrence: None)
  Receive Date: 20040108
  Receipt Date: 20040102
  Transmission Date: 20041129
  Serious: Yes (Hospitalization)
  Sender: FDA-Public Use
  Company Number: 2003-12-1596

PATIENT
  Age: 72 Year
  Sex: Male

DRUGS (11)
  1. GENTAMICIN SULFATE [Suspect]
     Indication: SERRATIA INFECTION
     Dosage: SEE IMAGE INTRAVENOUS
     Route: 042
     Dates: start: 20030915, end: 20030924
  2. GENTAMICIN SULFATE [Suspect]
     Indication: SERRATIA INFECTION
     Dosage: SEE IMAGE INTRAVENOUS
     Route: 042
     Dates: start: 20030915, end: 20031006
  3. GENTAMICIN SULFATE [Suspect]
     Indication: SERRATIA INFECTION
     Dosage: SEE IMAGE INTRAVENOUS
     Route: 042
     Dates: start: 20030924, end: 20031006
  4. CIPROFLOXACIN [Suspect]
     Indication: SERRATIA INFECTION
     Dosage: 500 MG BID ORAL
     Route: 048
     Dates: start: 20030915, end: 20030924
  5. RIFADIN [Suspect]
     Indication: STAPHYLOCOCCAL INFECTION
     Dosage: ORAL
     Dates: start: 20030924, end: 20031008
  6. CLAFORAN [Suspect]
     Indication: STAPHYLOCOCCAL INFECTION
     Dosage: 4 G TID
     Dates: start: 20030924, end: 20031004
  7. TAZOCILLINE (PIPERACILLIN/TAZOBACTAM) [Suspect]
     Indication: STAPHYLOCOCCAL INFECTION
     Dosage: 4 GM QD ORAL
     Route: 048
     Dates: start: 20031004, end: 20031008
  8. LIPANTHYL [Concomitant]
  9. MONO-TILDIEM (DILTIAZEM) [Concomitant]
  10. DIANTALVIC [Concomitant]
  11. CANDESARTAN CILEXETIL [Concomitant]

REACTIONS (2)
  - HEPATITIS [None]
  - RENAL FAILURE [None]
